FAERS Safety Report 25091475 (Version 1)
Quarter: 2025Q1

REPORT INFORMATION
  Report Type: Spontaneous
  Country: US (occurrence: US)
  Receive Date: 20250318
  Receipt Date: 20250318
  Transmission Date: 20250408
  Serious: No
  Sender: SANOFI AVENTIS
  Company Number: US-SA-2025SA078420

PATIENT
  Sex: Male
  Weight: 111.36 kg

DRUGS (16)
  1. DUPIXENT [Suspect]
     Active Substance: DUPILUMAB
     Indication: Asthma
     Dosage: 300 MG, QOW
     Route: 058
  2. ADVIL [Concomitant]
     Active Substance: IBUPROFEN
  3. ALBUTEROL SULFATE [Concomitant]
     Active Substance: ALBUTEROL SULFATE
  4. EZETIMIBE [Concomitant]
     Active Substance: EZETIMIBE
  5. OSELTAMIVIR PHOSPHATE [Concomitant]
     Active Substance: OSELTAMIVIR PHOSPHATE
  6. METHYLPREDNISOLONE [Concomitant]
     Active Substance: METHYLPREDNISOLONE
  7. LEVOFLOXACIN [Concomitant]
     Active Substance: LEVOFLOXACIN
  8. VITAMIN B12 [Concomitant]
     Active Substance: CYANOCOBALAMIN
  9. FISH OIL [Concomitant]
     Active Substance: FISH OIL
  10. MONTELUKAST SODIUM [Concomitant]
     Active Substance: MONTELUKAST SODIUM
  11. PNEUMOVAX 23 [Concomitant]
     Active Substance: PNEUMOCOCCAL VACCINE, POLYVALENT 23
  12. FLUARIX NOS [Concomitant]
     Active Substance: INFLUENZA VIRUS VACCINE
  13. PRILOSEC OTC [Concomitant]
     Active Substance: OMEPRAZOLE MAGNESIUM
  14. MINERALS\VITAMINS [Concomitant]
     Active Substance: MINERALS\VITAMINS
  15. DEXTROMETHORPHAN HYDROBROMIDE\PROMETHAZINE HYDROCHLORIDE [Concomitant]
     Active Substance: DEXTROMETHORPHAN HYDROBROMIDE\PROMETHAZINE HYDROCHLORIDE
  16. ASPIRIN [Concomitant]
     Active Substance: ASPIRIN

REACTIONS (5)
  - Influenza [Unknown]
  - Respiratory tract congestion [Not Recovered/Not Resolved]
  - Cough [Not Recovered/Not Resolved]
  - Dyspnoea [Unknown]
  - Off label use [Unknown]
